FAERS Safety Report 17207422 (Version 1)
Quarter: 2019Q4

REPORT INFORMATION
  Report Type: Spontaneous
  Country: US (occurrence: US)
  Receive Date: 20191205
  Receipt Date: 20191205
  Transmission Date: 20200122
  Serious: No
  Sender: FDA-Public Use
  Company Number: None

PATIENT
  Sex: Male

DRUGS (1)
  1. BIKTARVY [Suspect]
     Active Substance: BICTEGRAVIR SODIUM\EMTRICITABINE\TENOFOVIR ALAFENAMIDE FUMARATE
     Dosage: ?          OTHER DOSE:50/200/25M;OTHER FREQUENCY:ONCE DAILY;?
     Route: 048
     Dates: start: 201907

REACTIONS (4)
  - Nausea [None]
  - Sleep terror [None]
  - Blood pressure increased [None]
  - Insomnia [None]
